FAERS Safety Report 4980033-7 (Version None)
Quarter: 2006Q2

REPORT INFORMATION
  Report Type: 
  Country: None (occurrence: None)
  Receive Date: 20060421
  Receipt Date: 20050706
  Transmission Date: 20061013
  Serious: Yes (Hospitalization, Disabling)
  Sender: FDA-Public Use
  Company Number: US-MERCK-0507USA00854

PATIENT
  Age: 44 Year
  Sex: Female
  Weight: 125 kg

DRUGS (5)
  1. VIOXX [Suspect]
     Indication: ARTHRITIS
     Route: 048
     Dates: start: 20010101, end: 20020101
  2. BEXTRA [Concomitant]
     Route: 065
  3. CELEBREX [Concomitant]
     Route: 065
  4. ADALAT [Concomitant]
     Route: 065
  5. CLONIDINE [Concomitant]
     Route: 065

REACTIONS (3)
  - ASTHMA [None]
  - CARDIAC DISORDER [None]
  - MYOCARDIAL INFARCTION [None]
